FAERS Safety Report 17896869 (Version 4)
Quarter: 2020Q3

REPORT INFORMATION
  Report Type: Report from Study
  Country: None (occurrence: IL)
  Receive Date: 20200615
  Receipt Date: 20200722
  Transmission Date: 20201103
  Serious: Yes (Hospitalization)
  Sender: FDA-Public Use
  Company Number: IL-ABBVIE-20P-082-3435867-00

PATIENT
  Age: 74 Year
  Sex: Male

DRUGS (15)
  1. CALTRATE [Concomitant]
     Active Substance: CALCIUM CARBONATE
     Indication: MINERAL SUPPLEMENTATION
     Route: 048
     Dates: start: 20200420
  2. ENALADEX [Concomitant]
     Active Substance: ENALAPRIL MALEATE
     Indication: HYPERTENSION
     Route: 048
     Dates: start: 2000
  3. LOSEC [Concomitant]
     Active Substance: OMEPRAZOLE
     Indication: PROPHYLAXIS AGAINST GASTROINTESTINAL ULCER
     Route: 048
     Dates: start: 20200420
  4. PLAVIX [Concomitant]
     Active Substance: CLOPIDOGREL BISULFATE
     Indication: THROMBOSIS PROPHYLAXIS
     Route: 048
     Dates: start: 20200420
  5. RESPRIM FORTE [Concomitant]
     Active Substance: SULFAMETHOXAZOLE\TRIMETHOPRIM
     Indication: ANTIBIOTIC PROPHYLAXIS
     Dosage: 160/800 MG
     Route: 048
     Dates: start: 20200420
  6. VITAMIDYNE D [Concomitant]
     Indication: NUTRITIONAL SUPPLEMENTATION
     Route: 048
     Dates: start: 2018
  7. VENETOCLAX. [Suspect]
     Active Substance: VENETOCLAX
     Route: 048
     Dates: start: 20200616
  8. TRIBEMIN [Concomitant]
     Active Substance: CYANOCOBALAMIN\PYRIDOXINE HYDROCHLORIDE\THIAMINE
     Indication: NUTRITIONAL SUPPLEMENTATION
     Route: 048
     Dates: start: 2018
  9. LAXADIN [Concomitant]
     Active Substance: BISACODYL
     Indication: CONSTIPATION
     Route: 048
     Dates: start: 20200518
  10. DEXAMETHASONE. [Suspect]
     Active Substance: DEXAMETHASONE
     Indication: PLASMA CELL MYELOMA
     Dosage: ON DAYS 1, 8, 15  AND 22 PER CYCLE
     Route: 048
     Dates: start: 20200422, end: 20200603
  11. TAVANIC [Concomitant]
     Active Substance: LEVOFLOXACIN
     Indication: ANTIBIOTIC PROPHYLAXIS
     Route: 048
     Dates: start: 20200420
  12. PROCTO GLYVENOL [Concomitant]
     Indication: HAEMORRHOIDS
     Dosage: 1 APPLICATION
     Route: 061
     Dates: start: 20200504
  13. VENETOCLAX. [Suspect]
     Active Substance: VENETOCLAX
     Indication: PLASMA CELL MYELOMA
     Route: 048
     Dates: start: 20200420, end: 20200604
  14. EPANUTIN [Concomitant]
     Active Substance: PHENYTOIN SODIUM
     Indication: EPILEPSY
     Route: 048
     Dates: start: 1980
  15. ZOVIRAX [Concomitant]
     Active Substance: ACYCLOVIR
     Indication: ANTIVIRAL PROPHYLAXIS
     Route: 048
     Dates: start: 2018

REACTIONS (1)
  - Pneumonia [Recovered/Resolved]

NARRATIVE: CASE EVENT DATE: 20200605
